FAERS Safety Report 8455164-X (Version None)
Quarter: 2012Q2

REPORT INFORMATION
  Report Type: 
  Country: None (occurrence: None)
  Receive Date: 20120621
  Receipt Date: 20120613
  Transmission Date: 20120825
  Serious: Yes (Hospitalization, Other)
  Sender: FDA-Public Use
  Company Number: SA-MUTUAL PHARMACEUTICAL COMPANY, INC.-LVTM20120004

PATIENT
  Age: 33 Year
  Sex: Female

DRUGS (2)
  1. LEVETIRACETAM [Suspect]
     Indication: CONVULSION
     Route: 065
  2. NONE [Concomitant]

REACTIONS (2)
  - RASH MACULO-PAPULAR [None]
  - ANGIOEDEMA [None]
